FAERS Safety Report 9290039 (Version 2)
Quarter: 2013Q4

REPORT INFORMATION
  Report Type: Spontaneous
  Country: IT (occurrence: None)
  Receive Date: 20130510
  Receipt Date: 20131205
  Transmission Date: 20140711
  Serious: Yes (Other)
  Sender: FDA-Public Use
  Company Number: 1699058

PATIENT
  Age: 66 Year
  Sex: Male

DRUGS (1)
  1. OXALIPLATIN [Suspect]
     Indication: COLON CANCER
     Dosage: 170MG MILLIGRAMS, CYCLICAL, INTRAVENOUS
     Route: 042
     Dates: start: 20130424, end: 20130424

REACTIONS (4)
  - Tremor [None]
  - Flushing [None]
  - Nausea [None]
  - Dyspepsia [None]
